FAERS Safety Report 17872663 (Version 10)
Quarter: 2021Q1

REPORT INFORMATION
  Report Type: Report from Study
  Country: CN (occurrence: CN)
  Receive Date: 20200608
  Receipt Date: 20210301
  Transmission Date: 20210419
  Serious: Yes (Life-Threatening, Hospitalization, Other)
  Sender: FDA-Public Use
  Company Number: NVSC2020CN158383

PATIENT
  Age: 79 Year
  Sex: Male
  Weight: 57 kg

DRUGS (58)
  1. SODIUM RABEPRAZOLE [Concomitant]
     Active Substance: RABEPRAZOLE SODIUM
     Indication: GASTROINTESTINAL DISORDER PROPHYLAXIS
     Dosage: 20 MG, UNKNOWN
     Route: 065
     Dates: start: 20200605
  2. CEFUROXIM [Concomitant]
     Active Substance: CEFUROXIME
     Indication: INFECTION
     Dosage: 1.5 G, UNKNOWN
     Route: 065
     Dates: start: 20210116, end: 20210116
  3. METHOXYPHENAMINE [Concomitant]
     Active Substance: METHOXYPHENAMINE
     Indication: ASTHMA
     Dosage: 2 DF (2 PILLS), UNKNOWN
     Route: 065
     Dates: start: 20200605
  4. BISOPROLOL [Concomitant]
     Active Substance: BISOPROLOL
     Indication: CARDIOVASCULAR EVENT PROPHYLAXIS
     Dosage: 2.5 MG, UNKNOWN
     Route: 065
     Dates: start: 20201121, end: 20201127
  5. ENTRESTO [Suspect]
     Active Substance: SACUBITRIL\VALSARTAN
     Indication: CARDIAC FAILURE CHRONIC
     Dosage: 25 MG, BID
     Route: 048
     Dates: start: 20200421, end: 20200528
  6. ATORVASTATIN CALCIUM. [Concomitant]
     Active Substance: ATORVASTATIN CALCIUM
     Dosage: 20 MG, UNKNOWN
     Route: 065
     Dates: start: 20200802, end: 20200807
  7. RIVAROXABAN [Concomitant]
     Active Substance: RIVAROXABAN
     Dosage: K5 MG, UNKNOWN
     Route: 065
     Dates: start: 20201121, end: 20201127
  8. CREATINE PHOSPHATE SODIUM [Concomitant]
     Active Substance: CREATINE
     Indication: NUTRITIONAL SUPPLEMENTATION
     Dosage: 1 G, UNKNOWN
     Route: 065
     Dates: start: 20200601, end: 20200602
  9. MONTELUKAST SODIUM. [Concomitant]
     Active Substance: MONTELUKAST SODIUM
     Dosage: 10 MG, UNKNOWN
     Route: 065
     Dates: start: 20210124
  10. FUROSEMIDE. [Concomitant]
     Active Substance: FUROSEMIDE
     Dosage: 20 MG, UNKNOWN
     Route: 065
     Dates: start: 20201121, end: 20201124
  11. SPIRONOLACTONE. [Concomitant]
     Active Substance: SPIRONOLACTONE
     Dosage: 20 MG, UNKNOWN
     Route: 065
     Dates: start: 20210116, end: 20210116
  12. ATORVASTATIN CALCIUM. [Concomitant]
     Active Substance: ATORVASTATIN CALCIUM
     Dosage: 20 MG, UNKNOWN
     Route: 065
     Dates: start: 20210116, end: 20210116
  13. METOPROLOL. [Concomitant]
     Active Substance: METOPROLOL
     Indication: OXYGEN CONSUMPTION
     Dosage: 23.75 MG, UNKNOWN
     Route: 065
     Dates: start: 20200601
  14. BUDESONIDE. [Concomitant]
     Active Substance: BUDESONIDE
     Indication: ASTHMA
     Dosage: 1 MG (SUSPENSION FOR INHALATION)
     Route: 065
     Dates: start: 20200602, end: 20200610
  15. MONTELUKAST SODIUM. [Concomitant]
     Active Substance: MONTELUKAST SODIUM
     Indication: ASTHMA
     Dosage: 10 MG, UNKNOWN
     Route: 065
     Dates: start: 20200602
  16. MONTELUKAST SODIUM. [Concomitant]
     Active Substance: MONTELUKAST SODIUM
     Dosage: 10 MG, UNKNOWN
     Route: 065
     Dates: start: 20200802, end: 20200807
  17. LEVOFLOXACIN HYDROCHLORIDE AND SODIUM CHLORID [Concomitant]
     Indication: INFLAMMATION
     Dosage: 100 ML, UNKNOWN
     Route: 065
     Dates: start: 20200605, end: 20200611
  18. AMLODIPINE [Concomitant]
     Active Substance: AMLODIPINE BESYLATE
     Indication: ASTHMA
     Dosage: 0.2 G, UNKNOWN
     Route: 065
     Dates: start: 20200802, end: 20200807
  19. TORASEMIDE [Concomitant]
     Active Substance: TORSEMIDE
     Indication: DIURETIC THERAPY
     Dosage: 20 MG, UNKNOWN
     Route: 065
     Dates: start: 20200601, end: 20200602
  20. ATORVASTATIN CALCIUM. [Concomitant]
     Active Substance: ATORVASTATIN CALCIUM
     Dosage: 20 MG, UNKNOWN
     Route: 065
     Dates: start: 20210124
  21. RIVAROXABAN [Concomitant]
     Active Substance: RIVAROXABAN
     Dosage: 20 MG, UNKNOWN
     Route: 065
     Dates: start: 20200802, end: 20200810
  22. AMBROXOL [Concomitant]
     Active Substance: AMBROXOL
     Dosage: 30 MG, UNKNOWN
     Route: 065
     Dates: start: 20210116, end: 20210116
  23. THEOPHYLLINE [Concomitant]
     Active Substance: THEOPHYLLINE ANHYDROUS
     Dosage: 0.1 G, UNKNOWN
     Route: 065
     Dates: start: 20210116, end: 20210116
  24. TORASEMIDE [Concomitant]
     Active Substance: TORSEMIDE
     Dosage: 20 MG, UNKNOWN
     Route: 065
     Dates: start: 20200604, end: 20200605
  25. TORASEMIDE [Concomitant]
     Active Substance: TORSEMIDE
     Dosage: 20 MG, UNKNOWN
     Route: 065
     Dates: start: 20200802, end: 20200803
  26. RIVAROXABAN [Concomitant]
     Active Substance: RIVAROXABAN
     Dosage: 15 MG, UNKNOWN
     Route: 065
     Dates: start: 20210124
  27. AMBROXOL [Concomitant]
     Active Substance: AMBROXOL
     Indication: PRODUCTIVE COUGH
     Dosage: 60 MG, UNKNOWN
     Route: 065
     Dates: start: 20200602
  28. IPRATROPIUM BROMIDE. [Concomitant]
     Active Substance: IPRATROPIUM BROMIDE
     Indication: ASTHMA
     Dosage: 500 UG, UNKNOWN
     Route: 065
     Dates: start: 20200602, end: 20200610
  29. AMINOPHYLLINE. [Concomitant]
     Active Substance: AMINOPHYLLINE
     Indication: ASTHMA
     Dosage: 0.2 G, UNKNOWN
     Route: 065
     Dates: start: 20200602
  30. SPIRONOLACTONE. [Concomitant]
     Active Substance: SPIRONOLACTONE
     Indication: POLYURIA
     Dosage: 20 MG, UNKNOWN
     Route: 065
     Dates: start: 20201121, end: 20201124
  31. ATORVASTATIN CALCIUM. [Concomitant]
     Active Substance: ATORVASTATIN CALCIUM
     Dosage: 20 MG, UNKNOWN
     Route: 065
     Dates: start: 20201121, end: 20201127
  32. RIVAROXABAN [Concomitant]
     Active Substance: RIVAROXABAN
     Dosage: 20 MG, UNKNOWN
     Route: 065
     Dates: start: 20200713, end: 20200730
  33. AMBROXOL [Concomitant]
     Active Substance: AMBROXOL
     Dosage: 30 MG, UNKNOWN
     Route: 065
     Dates: start: 20210124
  34. DIGOXIN. [Concomitant]
     Active Substance: DIGOXIN
     Indication: CARDIAC FAILURE
     Dosage: 0.125 MG, QD
     Route: 065
     Dates: start: 20200602
  35. DIGOXIN. [Concomitant]
     Active Substance: DIGOXIN
     Dosage: 0.125 MG, UNKNOWN
     Route: 065
     Dates: start: 20200714, end: 20200730
  36. FUROSEMIDE. [Concomitant]
     Active Substance: FUROSEMIDE
     Indication: CARDIAC FAILURE CHRONIC
     Dosage: 20 MG, BID
     Route: 065
     Dates: start: 20200601
  37. FUROSEMIDE. [Concomitant]
     Active Substance: FUROSEMIDE
     Dosage: 20 MG, UNKNOWN
     Route: 065
     Dates: start: 20210124
  38. THEOPHYLLINE [Concomitant]
     Active Substance: THEOPHYLLINE ANHYDROUS
     Indication: ASTHMA PROPHYLAXIS
     Dosage: 0.1 G, UNKNOWN
     Route: 065
     Dates: start: 20201121, end: 20201127
  39. THEOPHYLLINE [Concomitant]
     Active Substance: THEOPHYLLINE ANHYDROUS
     Dosage: 0.1 G, UNKNOWN
     Route: 065
     Dates: start: 20210124
  40. TAMSULOSIN [Concomitant]
     Active Substance: TAMSULOSIN
     Indication: DYSURIA
     Dosage: 0.2 MG, UNKNOWN
     Route: 065
     Dates: start: 20210116, end: 20210116
  41. TAMSULOSIN [Concomitant]
     Active Substance: TAMSULOSIN
     Dosage: 0.2 MG, UNKNOWN
     Route: 065
     Dates: start: 20210124
  42. ENTRESTO [Suspect]
     Active Substance: SACUBITRIL\VALSARTAN
     Dosage: 25 MG, BID
     Route: 048
     Dates: start: 20200601
  43. ATORVASTATIN CALCIUM. [Concomitant]
     Active Substance: ATORVASTATIN CALCIUM
     Indication: DYSLIPIDAEMIA
     Dosage: 20 MG, UNKNOWN
     Route: 065
     Dates: start: 20200601
  44. RIVAROXABAN [Concomitant]
     Active Substance: RIVAROXABAN
     Indication: ANTICOAGULANT THERAPY
     Dosage: 15 MG, UNKNOWN
     Route: 065
     Dates: start: 20200601
  45. CREATINE PHOSPHATE SODIUM [Concomitant]
     Active Substance: CREATINE
     Dosage: 1 G, UNKNOWN
     Route: 065
     Dates: start: 20200718, end: 20200729
  46. MONTELUKAST SODIUM. [Concomitant]
     Active Substance: MONTELUKAST SODIUM
     Dosage: 10 MG, UNKNOWN
     Route: 065
     Dates: start: 20210116, end: 20210116
  47. SPIRONOLACTONE. [Concomitant]
     Active Substance: SPIRONOLACTONE
     Dosage: 20 MG, UNKNOWN
     Route: 065
     Dates: start: 20210124
  48. CELECOXIB. [Concomitant]
     Active Substance: CELECOXIB
     Indication: INFLAMMATION
     Dosage: 0.2 G, UNKNOWN
     Route: 065
     Dates: start: 20200605, end: 20200610
  49. CELECOXIB. [Concomitant]
     Active Substance: CELECOXIB
     Indication: ANALGESIC THERAPY
     Dosage: 0.2 G, UNKNOWN
     Route: 065
     Dates: start: 20210119, end: 20210119
  50. BISOPROLOL [Concomitant]
     Active Substance: BISOPROLOL
     Dosage: 1.25 MG, UNKNOWN
     Route: 065
     Dates: start: 20210116, end: 20210116
  51. BISOPROLOL [Concomitant]
     Active Substance: BISOPROLOL
     Dosage: 1.25 MG, UNKNOWN
     Route: 065
     Dates: start: 20210124
  52. ATORVASTATIN CALCIUM. [Concomitant]
     Active Substance: ATORVASTATIN CALCIUM
     Indication: ARTERIOSCLEROSIS
     Dosage: 20 MG, UNKNOWN
     Route: 065
     Dates: start: 20200713, end: 20200730
  53. RIVAROXABAN [Concomitant]
     Active Substance: RIVAROXABAN
     Dosage: 15 MG, UNKNOWN
     Route: 065
     Dates: start: 20210116, end: 20210116
  54. CREATINE PHOSPHATE SODIUM [Concomitant]
     Active Substance: CREATINE
     Dosage: 1 G, UNKNOWN
     Route: 065
     Dates: start: 20200604, end: 20200604
  55. DIGOXIN. [Concomitant]
     Active Substance: DIGOXIN
     Dosage: 0.125 MG, UNKNOWN
     Route: 065
     Dates: start: 20200802, end: 20200807
  56. FUROSEMIDE. [Concomitant]
     Active Substance: FUROSEMIDE
     Indication: POLYURIA
     Dosage: 20 MG, UNKNOWN
     Route: 065
     Dates: start: 20200730, end: 20200730
  57. FUROSEMIDE. [Concomitant]
     Active Substance: FUROSEMIDE
     Dosage: 20 MG, UNKNOWN
     Route: 065
     Dates: start: 20210116, end: 20210116
  58. SPIRONOLACTONE. [Concomitant]
     Active Substance: SPIRONOLACTONE
     Indication: CARDIAC FAILURE CHRONIC
     Dosage: 20 MG, QD
     Route: 065

REACTIONS (32)
  - Chronic obstructive pulmonary disease [Recovering/Resolving]
  - Pleural thickening [Unknown]
  - Cardiac failure [Recovering/Resolving]
  - Wheezing [Recovering/Resolving]
  - Cardiac failure acute [Recovering/Resolving]
  - Pneumonitis [Recovering/Resolving]
  - Rib fracture [Not Recovered/Not Resolved]
  - Arrhythmia [Recovering/Resolving]
  - Pleural effusion [Unknown]
  - Tachypnoea [Recovered/Resolved]
  - Atrial fibrillation [Unknown]
  - N-terminal prohormone brain natriuretic peptide increased [Recovering/Resolving]
  - Cardiac valve disease [Unknown]
  - Blood creatinine increased [Not Recovered/Not Resolved]
  - Cough [Recovered/Resolved]
  - Cerebrovascular insufficiency [Recovering/Resolving]
  - Alanine aminotransferase decreased [Recovering/Resolving]
  - Spinal column injury [Not Recovered/Not Resolved]
  - Blood albumin increased [Recovering/Resolving]
  - Blood pressure decreased [Recovering/Resolving]
  - Asthenia [Recovering/Resolving]
  - Chest discomfort [Recovering/Resolving]
  - Chest pain [Recovered/Resolved]
  - Cerebral infarction [Unknown]
  - Aortic arteriosclerosis [Not Recovered/Not Resolved]
  - Pulmonary artery dilatation [Not Recovered/Not Resolved]
  - Bronchial disorder [Recovering/Resolving]
  - Pulmonary fibrosis [Unknown]
  - Pleural adhesion [Unknown]
  - Benign prostatic hyperplasia [Recovering/Resolving]
  - Clavicle fracture [Not Recovered/Not Resolved]
  - Oedema peripheral [Recovering/Resolving]

NARRATIVE: CASE EVENT DATE: 20200513
